FAERS Safety Report 22044323 (Version 1)
Quarter: 2023Q1

REPORT INFORMATION
  Report Type: Spontaneous
  Country: US (occurrence: US)
  Receive Date: 20230228
  Receipt Date: 20230228
  Transmission Date: 20230417
  Serious: Yes (Other)
  Sender: FDA-Public Use
  Company Number: US-GSKCCFUS-Case-01634142_AE-92261

PATIENT

DRUGS (1)
  1. TRELEGY ELLIPTA [Suspect]
     Active Substance: FLUTICASONE FUROATE\UMECLIDINIUM BROMIDE\VILANTEROL TRIFENATATE
     Indication: Chronic obstructive pulmonary disease
     Dosage: 1 PUFF(S), QD 200/62.5/25MCG
     Route: 055

REACTIONS (11)
  - Pulmonary congestion [Unknown]
  - Blood pressure increased [Not Recovered/Not Resolved]
  - Fatigue [Not Recovered/Not Resolved]
  - Productive cough [Unknown]
  - Aphonia [Unknown]
  - Anxiety [Unknown]
  - Nervousness [Unknown]
  - Dyspnoea [Unknown]
  - Panic attack [Unknown]
  - Overdose [Unknown]
  - Drug ineffective [Unknown]
